FAERS Safety Report 5250277-8 (Version None)
Quarter: 2007Q1

REPORT INFORMATION
  Report Type: 
  Country: None (occurrence: None)
  Receive Date: 20070228
  Receipt Date: 20060315
  Transmission Date: 20070707
  Serious: No
  Sender: FDA-Public Use
  Company Number: US-GLAXOSMITHKLINE-A0597699A

PATIENT
  Age: 24 Year
  Sex: Female

DRUGS (3)
  1. LAMICTAL [Suspect]
     Indication: BIPOLAR DISORDER
     Dosage: 250MG PER DAY
     Route: 048
     Dates: start: 20051001, end: 20060315
  2. ORTHO CYCLEN-28 [Concomitant]
  3. HERBAL SUPPLEMENT [Concomitant]

REACTIONS (5)
  - BACK PAIN [None]
  - FATIGUE [None]
  - FEELING ABNORMAL [None]
  - NECK PAIN [None]
  - RASH GENERALISED [None]
